FAERS Safety Report 8120073-2 (Version None)
Quarter: 2012Q1

REPORT INFORMATION
  Report Type: 
  Country: None (occurrence: None)
  Receive Date: 20120207
  Receipt Date: 20120203
  Transmission Date: 20120608
  Serious: Yes (Other)
  Sender: FDA-Public Use
  Company Number: US-PFIZER INC-2012030908

PATIENT
  Sex: Female
  Weight: 90.703 kg

DRUGS (9)
  1. LIPITOR [Suspect]
     Indication: BLOOD CHOLESTEROL INCREASED
     Dosage: 20 MG, DAILY
     Route: 048
  2. NAPROXEN SODIUM [Suspect]
     Indication: POLYARTHRITIS
     Dosage: UNK
     Dates: end: 20111201
  3. CELEBREX [Suspect]
     Dosage: 200 MG, DAILY
     Dates: start: 20111201
  4. AMLODIPINE BESYLATE [Suspect]
     Indication: PULMONARY HYPERTENSION
     Dosage: 5 MG, DAILY
  5. SIMVASTATIN [Suspect]
     Indication: BLOOD CHOLESTEROL INCREASED
     Dosage: UNK
     Dates: end: 20111001
  6. AMLODIPINE BESYLATE [Suspect]
     Dosage: 5 MG, 2X/DAY
     Dates: end: 20110101
  7. LEVOXYL [Concomitant]
     Indication: THYROIDECTOMY
     Dosage: 175 UG, DAILY
  8. LIPITOR [Suspect]
     Dosage: 20 MG, DAILY
     Route: 048
     Dates: start: 20111001
  9. CELEBREX [Suspect]
     Indication: POLYARTHRITIS
     Dosage: 200 MG, DAILY

REACTIONS (3)
  - JOINT SWELLING [None]
  - PULMONARY HYPERTENSION [None]
  - CENTRAL NERVOUS SYSTEM LESION [None]
